FAERS Safety Report 10091496 (Version 2)
Quarter: 2014Q2

REPORT INFORMATION
  Report Type: Spontaneous
  Country: US (occurrence: US)
  Receive Date: 20140421
  Receipt Date: 20140421
  Transmission Date: 20141212
  Serious: No
  Sender: FDA-Public Use
  Company Number: US-GILEAD-2012-0065808

PATIENT
  Sex: Female

DRUGS (4)
  1. LETAIRIS [Suspect]
     Indication: COR PULMONALE CHRONIC
     Dosage: 5 MG, QD
     Route: 048
     Dates: start: 20120907
  2. EPOPROSTENOL [Suspect]
     Indication: PRODUCT USED FOR UNKNOWN INDICATION
  3. TYVASO [Concomitant]
  4. ADCIRCA [Concomitant]

REACTIONS (1)
  - Device related infection [Unknown]
